FAERS Safety Report 8835179 (Version 2)
Quarter: 2013Q1

REPORT INFORMATION
  Report Type: Spontaneous
  Country: CA (occurrence: CA)
  Receive Date: 20121011
  Receipt Date: 20130122
  Transmission Date: 20140127
  Serious: Yes (Hospitalization)
  Sender: FDA-Public Use
  Company Number: CA-ROCHE-1144041

PATIENT
  Age: 49 None
  Sex: Male

DRUGS (2)
  1. PEGASYS [Suspect]
     Indication: HEPATIC CIRRHOSIS
     Route: 058
     Dates: start: 20120514, end: 20121002
  2. COPEGUS [Suspect]
     Indication: HEPATIC CIRRHOSIS
     Route: 048
     Dates: start: 20120514, end: 20121002

REACTIONS (7)
  - Confusional state [Recovered/Resolved]
  - Blood creatinine increased [Unknown]
  - Nausea [Unknown]
  - Vomiting [Unknown]
  - Ammonia increased [Unknown]
  - Infection [Unknown]
  - Encephalopathy [Recovered/Resolved]
